FAERS Safety Report 8505031-8 (Version None)
Quarter: 2012Q3

REPORT INFORMATION
  Report Type: 
  Country: None (occurrence: None)
  Receive Date: 20120712
  Receipt Date: 20120702
  Transmission Date: 20120928
  Serious: No
  Sender: FDA-Public Use
  Company Number: US-009507513-1207USA000371

PATIENT

DRUGS (1)
  1. NUVARING [Suspect]
     Indication: CONTRACEPTION
     Dosage: UNK
     Route: 067
     Dates: start: 20120603, end: 20120628

REACTIONS (6)
  - PAIN IN EXTREMITY [None]
  - MIGRAINE [None]
  - FATIGUE [None]
  - CHEST PAIN [None]
  - ABDOMINAL PAIN [None]
  - PRODUCT QUALITY ISSUE [None]
